FAERS Safety Report 7210483-X (Version None)
Quarter: 2010Q4

REPORT INFORMATION
  Report Type: 
  Country: None (occurrence: None)
  Receive Date: 20101227
  Receipt Date: 20101215
  Transmission Date: 20110411
  Serious: Yes (Hospitalization)
  Sender: FDA-Public Use
  Company Number: 768398

PATIENT
  Age: 21 Year
  Sex: Male

DRUGS (8)
  1. METHOTREXATE [Suspect]
     Indication: ACUTE LYMPHOCYTIC LEUKAEMIA
     Dosage: 12.5 MG MILLIGRAM(S), 1 MONTH, INTRATHECAL
     Route: 037
  2. VINCRISTINE SULFATE [Suspect]
     Indication: ACUTE LYMPHOCYTIC LEUKAEMIA
     Dosage: 1 MG MILLIGRAM(S) (1 MONTH) INTRAVENOUS (NOT OTHERWISE SPECIFIED)
     Route: 042
  3. CYTARABINE [Suspect]
     Indication: ACUTE LYMPHOCYTIC LEUKAEMIA
     Dosage: 30 MG MILLIGRAM(S) (1 MONTH) INTRATHECAL
     Route: 037
  4. METHOTREXATE [Suspect]
     Indication: ACUTE LYMPHOCYTIC LEUKAEMIA
     Dosage: 10 MG MILLIGRAM(S) (1 WEEK) ORAL
     Route: 048
  5. MERCAPTOPURINE [Suspect]
     Indication: ACUTE LYMPHOCYTIC LEUKAEMIA
     Dosage: 70 MG MILLIGRAM(S) ORAL
     Route: 048
  6. HYDROCORTISONE [Suspect]
     Dosage: 12.5 MG MILLIGRAM(S) (1 MONTH) INTRATHECAL
     Route: 037
  7. PREDNISOLONE [Suspect]
     Indication: ACUTE LYMPHOCYTIC LEUKAEMIA
     Dosage: MONTHLY 5-DAY COURSES OF 40 MG DAILY ORAL
     Route: 048
  8. CYCLOPHOSPHAMIDE [Suspect]
     Indication: ACUTE LYMPHOCYTIC LEUKAEMIA

REACTIONS (10)
  - CEREBRAL HAEMATOMA [None]
  - DIALYSIS [None]
  - DIARRHOEA [None]
  - ESCHERICHIA INFECTION [None]
  - GRAND MAL CONVULSION [None]
  - HAEMODIALYSIS [None]
  - HAEMOLYTIC URAEMIC SYNDROME [None]
  - HYPERTENSION [None]
  - PANCYTOPENIA [None]
  - RENAL FAILURE ACUTE [None]
